FAERS Safety Report 9097151 (Version 1)
Quarter: 2013Q1

REPORT INFORMATION
  Report Type: Spontaneous
  Country: US (occurrence: US)
  Receive Date: 20130212
  Receipt Date: 20130212
  Transmission Date: 20140127
  Serious: Yes (Death, Other)
  Sender: FDA-Public Use
  Company Number: US-SANOFI-AVENTIS-2013SA011039

PATIENT
  Sex: Female

DRUGS (2)
  1. PLAVIX [Suspect]
     Route: 065
     Dates: start: 20100420
  2. ASPIRIN [Suspect]
     Route: 065
     Dates: start: 20100420

REACTIONS (2)
  - Subdural haematoma [Fatal]
  - Fall [Unknown]
